FAERS Safety Report 6111739-4 (Version None)
Quarter: 2009Q1

REPORT INFORMATION
  Report Type: 
  Country: None (occurrence: None)
  Receive Date: 20090310
  Receipt Date: 20090310
  Transmission Date: 20090719
  Serious: Yes (Other)
  Sender: FDA-Public Use
  Company Number: None

PATIENT
  Sex: Female
  Weight: 70.3075 kg

DRUGS (1)
  1. PROZAC [Suspect]
     Indication: PANIC ATTACK
     Dosage: ONCE A DAY FOR 11 YEARS PO
     Route: 048

REACTIONS (5)
  - FEELING JITTERY [None]
  - INSOMNIA [None]
  - MALAISE [None]
  - PRODUCT QUALITY ISSUE [None]
  - RESTLESSNESS [None]
